FAERS Safety Report 13747203 (Version 4)
Quarter: 2017Q3

REPORT INFORMATION
  Report Type: Spontaneous
  Country: US (occurrence: US)
  Receive Date: 20170712
  Receipt Date: 20170824
  Transmission Date: 20171127
  Serious: Yes (Other)
  Sender: FDA-Public Use
  Company Number: US-JNJFOC-20170704954

PATIENT
  Age: 32 Year
  Sex: Male
  Weight: 81.65 kg

DRUGS (1)
  1. RISPERDAL CONSTA [Suspect]
     Active Substance: RISPERIDONE
     Indication: ACCIDENTAL EXPOSURE TO PRODUCT
     Route: 065

REACTIONS (3)
  - Injury associated with device [Unknown]
  - Exposure to contaminated device [Unknown]
  - Device malfunction [Unknown]

NARRATIVE: CASE EVENT DATE: 20170703
